FAERS Safety Report 7487747-8 (Version None)
Quarter: 2011Q2

REPORT INFORMATION
  Report Type: 
  Country: None (occurrence: None)
  Receive Date: 20110518
  Receipt Date: 20110512
  Transmission Date: 20111010
  Serious: Yes (Hospitalization)
  Sender: FDA-Public Use
  Company Number: PHHO2010DE15756

PATIENT
  Sex: Female
  Weight: 72 kg

DRUGS (5)
  1. BLINDED NO TREATMENT RECEIVED [Suspect]
     Indication: CARDIAC FAILURE
     Dosage: DOUBLE BLIND
     Route: 048
     Dates: start: 20091127
  2. ENALAPRIL MALEATE [Suspect]
     Indication: CARDIAC FAILURE
     Dosage: UNK
     Dates: start: 20091127
  3. BLINDED ALISKIREN [Suspect]
     Indication: CARDIAC FAILURE
     Dosage: DOUBLE BLIND
     Route: 048
     Dates: start: 20091127
  4. ALISKIREN [Suspect]
     Indication: CARDIOVASCULAR DISORDER
  5. ENALAPRIL MALEATE [Suspect]
     Indication: CARDIAC FAILURE
     Dosage: DOUBLE BLIND
     Route: 048
     Dates: start: 20091127

REACTIONS (5)
  - HYPOGLYCAEMIA [None]
  - DEHYDRATION [None]
  - CEREBROVASCULAR ACCIDENT [None]
  - PNEUMONIA [None]
  - HYPERGLYCAEMIA [None]
